FAERS Safety Report 9482713 (Version 2)
Quarter: 2013Q3

REPORT INFORMATION
  Report Type: Spontaneous
  Country: CN (occurrence: CN)
  Receive Date: 20130828
  Receipt Date: 20130919
  Transmission Date: 20140515
  Serious: Yes (Other)
  Sender: FDA-Public Use
  Company Number: CN-JNJFOC-20130814641

PATIENT
  Age: 27 Year
  Sex: Male

DRUGS (2)
  1. XARELTO [Suspect]
     Indication: VARICOSE VEIN OPERATION
     Route: 048
  2. LOW MOLECULAR DEXTRAN [Concomitant]
     Route: 065

REACTIONS (4)
  - Hypoaesthesia [Recovering/Resolving]
  - Spinal haematoma [Unknown]
  - Hypoaesthesia [Unknown]
  - Activated partial thromboplastin time prolonged [Unknown]
